FAERS Safety Report 5517752-X (Version None)
Quarter: 2007Q4

REPORT INFORMATION
  Report Type: 
  Country: None (occurrence: None)
  Receive Date: 20071113
  Receipt Date: 20071105
  Transmission Date: 20080405
  Serious: Yes (Hospitalization, Other)
  Sender: FDA-Public Use
  Company Number: 2007334515

PATIENT
  Age: 16 Month
  Sex: Male
  Weight: 11.8 kg

DRUGS (1)
  1. BENADRYL [Suspect]
     Indication: HYPERSENSITIVITY
     Dosage: 3/4 TEASPOON EVERY 4 - 6 HOURS, ORAL
     Route: 048
     Dates: start: 20070601

REACTIONS (4)
  - EYES SUNKEN [None]
  - GENITAL ERYTHEMA [None]
  - GENITAL SWELLING [None]
  - WEIGHT DECREASED [None]
